FAERS Safety Report 16845224 (Version 2)
Quarter: 2019Q3

REPORT INFORMATION
  Report Type: Report from Study
  Country: FR (occurrence: FR)
  Receive Date: 20190924
  Receipt Date: 20190927
  Transmission Date: 20191005
  Serious: Yes (Death, Life-Threatening, Hospitalization)
  Sender: FDA-Public Use
  Company Number: FR-EMD SERONO-9118956

PATIENT
  Age: 40 Year
  Sex: Female

DRUGS (7)
  1. PARACETAMOL [Concomitant]
     Active Substance: ACETAMINOPHEN
     Indication: PREMEDICATION
     Route: 048
     Dates: start: 20190814
  2. NEFOPAM [Concomitant]
     Active Substance: NEFOPAM
     Indication: GROIN PAIN
     Route: 042
     Dates: start: 20190908, end: 20190914
  3. TG4001 [Suspect]
     Active Substance: INVESTIGATIONAL PRODUCT
     Indication: CERVIX CARCINOMA STAGE IV
     Dosage: 0.5X10E7 PFU
     Route: 058
     Dates: start: 20190807
  4. AVELUMAB [Suspect]
     Active Substance: AVELUMAB
     Indication: CERVIX CARCINOMA STAGE IV
     Route: 041
     Dates: start: 20190814
  5. ENOXAPARIN [Concomitant]
     Active Substance: ENOXAPARIN
     Indication: PROPHYLAXIS
     Route: 058
     Dates: start: 20190907, end: 20190917
  6. CETIRIZINE [Concomitant]
     Active Substance: CETIRIZINE HYDROCHLORIDE
     Indication: PREMEDICATION
     Route: 048
     Dates: start: 20190814
  7. PARACETAMOL CODEINE [Concomitant]
     Active Substance: ACETAMINOPHEN\CODEINE PHOSPHATE
     Indication: PAIN
     Dosage: 500 MG PARACETAMOL/ 30 MG CODEINE
     Route: 048
     Dates: start: 20190808

REACTIONS (1)
  - Central nervous system vasculitis [Fatal]

NARRATIVE: CASE EVENT DATE: 20190916
